FAERS Safety Report 9753865 (Version 3)
Quarter: 2015Q3

REPORT INFORMATION
  Report Type: Spontaneous
  Country: None (occurrence: US)
  Receive Date: 20131213
  Receipt Date: 20150805
  Transmission Date: 20151125
  Serious: No
  Sender: FDA-Public Use
  Company Number: US-GILEAD-2010-0027742

PATIENT
  Age: 77 Year
  Sex: Female

DRUGS (11)
  1. REVATIO [Concomitant]
     Active Substance: SILDENAFIL CITRATE
  2. POTASSIUM ACETATE. [Concomitant]
     Active Substance: POTASSIUM ACETATE
  3. DILTIAZEM [Concomitant]
     Active Substance: DILTIAZEM
  4. LETAIRIS [Suspect]
     Active Substance: AMBRISENTAN
     Indication: PULMONARY ARTERIAL HYPERTENSION
     Route: 048
     Dates: start: 200810
  5. FUROSEMIDE. [Concomitant]
     Active Substance: FUROSEMIDE
  6. CALTRATE [Concomitant]
     Active Substance: CALCIUM CARBONATE
  7. METOLAZONE. [Concomitant]
     Active Substance: METOLAZONE
  8. COUMADIN [Concomitant]
     Active Substance: WARFARIN SODIUM
  9. CENTRUM SILVER [Concomitant]
     Active Substance: VITAMINS
  10. TYVASO [Concomitant]
     Active Substance: TREPROSTINIL
  11. DIGOXIN. [Concomitant]
     Active Substance: DIGOXIN

REACTIONS (1)
  - Red blood cell count decreased [Unknown]

NARRATIVE: CASE EVENT DATE: 20100216
